FAERS Safety Report 9692503 (Version 1)
Quarter: 2013Q4

REPORT INFORMATION
  Report Type: Spontaneous
  Country: PL (occurrence: PL)
  Receive Date: 20131118
  Receipt Date: 20131118
  Transmission Date: 20140711
  Serious: Yes (Death)
  Sender: FDA-Public Use
  Company Number: PL-ACCORD-020361

PATIENT
  Age: 36 Year
  Sex: Male

DRUGS (4)
  1. INSULIN [Suspect]
  2. CLONAZEPAM [Suspect]
     Dosage: UNKNOWN QUANTITIES
  3. SERTRALINE [Suspect]
     Dosage: UNKNOWN QUANTITIES
  4. QUETIAPINE FUMARATE [Suspect]
     Dosage: UNKNOWN QUANTITIES

REACTIONS (4)
  - Toxicity to various agents [Fatal]
  - Completed suicide [Fatal]
  - Brain death [Fatal]
  - Cerebral circulatory failure [Fatal]
